FAERS Safety Report 24096020 (Version 1)
Quarter: 2024Q3

REPORT INFORMATION
  Report Type: Spontaneous
  Country: US (occurrence: US)
  Receive Date: 20240716
  Receipt Date: 20240716
  Transmission Date: 20241016
  Serious: No
  Sender: SANOFI AVENTIS
  Company Number: US-SA-SAC20240711001009

PATIENT
  Age: 26 Year
  Sex: Female
  Weight: 65 kg

DRUGS (1)
  1. DUPIXENT [Suspect]
     Active Substance: DUPILUMAB
     Indication: Dermatitis atopic
     Dosage: 300MG , QOW
     Route: 058

REACTIONS (8)
  - Dry skin [Not Recovered/Not Resolved]
  - Nausea [Recovered/Resolved]
  - Myalgia [Recovered/Resolved]
  - Skin exfoliation [Not Recovered/Not Resolved]
  - Pruritus [Recovering/Resolving]
  - Eye pruritus [Recovering/Resolving]
  - Injection site pain [Recovered/Resolved]
  - Injection site swelling [Recovered/Resolved]

NARRATIVE: CASE EVENT DATE: 20240101
